FAERS Safety Report 5088865-4 (Version None)
Quarter: 2006Q3

REPORT INFORMATION
  Report Type: 
  Country: None (occurrence: None)
  Receive Date: 20060825
  Receipt Date: 20060814
  Transmission Date: 20061208
  Serious: Yes (Other)
  Sender: FDA-Public Use
  Company Number: AU-ROCHE-459083

PATIENT
  Age: 68 Year
  Sex: Male

DRUGS (4)
  1. CAPECITABINE [Suspect]
     Dosage: 2500 MG/M2, DAYS 1-14, EVERY THREE WEEKS AS PER PROTOCOL.  REPORTED AS 1200MG/M2 PER DAY.
     Route: 048
     Dates: start: 20050927, end: 20060704
  2. AVASTIN [Suspect]
     Route: 042
     Dates: start: 20050927, end: 20060704
  3. MITOMYCIN [Suspect]
     Route: 042
     Dates: start: 20050927, end: 20060704
  4. ACETYLSALICYLIC ACID SRT [Concomitant]
     Route: 048
     Dates: start: 20050928

REACTIONS (1)
  - PROTEINURIA [None]
